FAERS Safety Report 4539489-6 (Version None)
Quarter: 2004Q4

REPORT INFORMATION
  Report Type: 
  Country: None (occurrence: None)
  Receive Date: 20041222
  Receipt Date: 20041209
  Transmission Date: 20050328
  Serious: Yes (Death, Hospitalization)
  Sender: FDA-Public Use
  Company Number: EWC041040825

PATIENT
  Sex: Female

DRUGS (2)
  1. XIGRIS [Suspect]
     Indication: SEPSIS
     Dosage: 24 UK/KG/HR
     Dates: start: 20040726, end: 20040730
  2. FRAXIPARINE (NADROPARIN CALCIUM) [Concomitant]

REACTIONS (2)
  - DISSEMINATED INTRAVASCULAR COAGULATION [None]
  - HAEMORRHAGE INTRACRANIAL [None]
